FAERS Safety Report 25994339 (Version 1)
Quarter: 2025Q4

REPORT INFORMATION
  Report Type: Spontaneous
  Country: US (occurrence: US)
  Receive Date: 20251104
  Receipt Date: 20251104
  Transmission Date: 20260117
  Serious: Yes (Other)
  Sender: RANBAXY
  Company Number: US-SUN PHARMACEUTICAL INDUSTRIES LTD-2025R1-534444

PATIENT
  Age: 16 Year
  Sex: Male

DRUGS (1)
  1. ISOTRETINOIN [Suspect]
     Active Substance: ISOTRETINOIN
     Indication: Face oedema
     Dosage: 40 MILLIGRAM, DAILY
     Route: 065

REACTIONS (2)
  - Eosinophilic oesophagitis [Recovered/Resolved]
  - Therapeutic response decreased [Unknown]
